FAERS Safety Report 6252540-0 (Version None)
Quarter: 2009Q3

REPORT INFORMATION
  Report Type: 
  Country: None (occurrence: None)
  Receive Date: 20090701
  Receipt Date: 20090621
  Transmission Date: 20100115
  Serious: Yes (Hospitalization)
  Sender: FDA-Public Use
  Company Number: CA-ABBOTT-09P-028-0579952-00

PATIENT
  Sex: Male
  Weight: 47.67 kg

DRUGS (2)
  1. DEPAKENE [Suspect]
     Indication: EPILEPSY
     Route: 048
     Dates: start: 20070701
  2. IPRATROPIUM BROMIDE [Concomitant]
     Indication: PULMONARY CONGESTION
     Route: 055
     Dates: start: 20090522

REACTIONS (2)
  - DRUG EFFECT DECREASED [None]
  - DRUG LEVEL INCREASED [None]
